FAERS Safety Report 6050497-9 (Version None)
Quarter: 2009Q1

REPORT INFORMATION
  Report Type: 
  Country: None (occurrence: None)
  Receive Date: 20090126
  Receipt Date: 20090114
  Transmission Date: 20090719
  Serious: Yes (Disabling, Other)
  Sender: FDA-Public Use
  Company Number: PHHY2008AT27715

PATIENT
  Sex: Female
  Weight: 70 kg

DRUGS (4)
  1. EXJADE [Suspect]
     Indication: SERUM FERRITIN INCREASED
     Dosage: 15 MG/KG (2X 500 MG)
  2. EXJADE [Suspect]
     Dosage: 1750 MG/DAY
     Dates: start: 20080901
  3. EXJADE [Suspect]
     Dosage: 750 MG, UNK
  4. ASPIRIN [Concomitant]
     Indication: PAIN

REACTIONS (12)
  - ABDOMINAL PAIN UPPER [None]
  - ANOREXIA [None]
  - ARTHRALGIA [None]
  - ERUCTATION [None]
  - GASTROENTERITIS [None]
  - HAEMOGLOBIN DECREASED [None]
  - HAEMOSIDEROSIS [None]
  - MOVEMENT DISORDER [None]
  - NAUSEA [None]
  - OEDEMA [None]
  - PROTEINURIA [None]
  - RASH [None]
